FAERS Safety Report 6942912-0 (Version None)
Quarter: 2010Q3

REPORT INFORMATION
  Report Type: 
  Country: None (occurrence: None)
  Receive Date: 20100826
  Receipt Date: 20100823
  Transmission Date: 20110219
  Serious: Yes (Hospitalization)
  Sender: FDA-Public Use
  Company Number: DE-ROCHE-722968

PATIENT
  Sex: Female

DRUGS (16)
  1. TRASTUZUMAB [Suspect]
     Route: 042
     Dates: start: 20100520
  2. TRASTUZUMAB [Suspect]
     Dosage: LAST DOSE RECEIVED PRIOR TO THE SAE ON 01 JULY 2010
     Route: 042
     Dates: start: 20100527
  3. TRASTUZUMAB [Suspect]
     Route: 042
     Dates: start: 20100701
  4. TRASTUZUMAB [Suspect]
     Route: 042
     Dates: start: 20100714
  5. PACLITAXEL [Suspect]
     Route: 042
     Dates: start: 20100520
  6. PACLITAXEL [Suspect]
     Dosage: LAST DOSE RECEIVED PRIOR TO THE SAE ON 01 JULY 2010. DOSE REDUCED
     Route: 042
     Dates: start: 20100610
  7. PACLITAXEL [Suspect]
     Route: 042
     Dates: start: 20100701
  8. INSULIN [Concomitant]
  9. BISOPROLOL [Concomitant]
  10. DIPYRONE [Concomitant]
  11. PANTOPRAZOLE [Concomitant]
  12. KETOPROFEN [Concomitant]
  13. ENOXAPARIN SODIUM [Concomitant]
  14. RAMIPRIL [Concomitant]
  15. TARGIN [Concomitant]
  16. TORSEMIDE [Concomitant]

REACTIONS (1)
  - HYPERTHYROIDISM [None]
